FAERS Safety Report 8055036-9 (Version None)
Quarter: 2012Q1

REPORT INFORMATION
  Report Type: 
  Country: None (occurrence: None)
  Receive Date: 20120119
  Receipt Date: 20120116
  Transmission Date: 20120608
  Serious: Yes (Other)
  Sender: FDA-Public Use
  Company Number: JP-PFIZER INC-2012013026

PATIENT
  Age: 73 Year
  Sex: Female

DRUGS (1)
  1. CELECOXIB [Suspect]
     Dosage: 200 MG, DAILY
     Route: 048

REACTIONS (2)
  - LARYNGEAL OEDEMA [None]
  - VOCAL CORD POLYP [None]
